FAERS Safety Report 8920040 (Version 1)
Quarter: 2012Q4

REPORT INFORMATION
  Report Type: 
  Country: US (occurrence: US)
  Receive Date: 20121121
  Receipt Date: 20121121
  Transmission Date: 20130627
  Serious: No
  Sender: FDA-Public Use
  Company Number: US-BRISTOL-MYERS SQUIBB COMPANY-16536195

PATIENT
  Sex: Female
  Weight: 45 kg

DRUGS (1)
  1. AVALIDE [Suspect]

REACTIONS (2)
  - Fatigue [Unknown]
  - Confusional state [Unknown]
